FAERS Safety Report 8153655-2 (Version None)
Quarter: 2012Q1

REPORT INFORMATION
  Report Type: 
  Country: None (occurrence: None)
  Receive Date: 20120221
  Receipt Date: 20120213
  Transmission Date: 20120608
  Serious: Yes (Hospitalization, Other)
  Sender: FDA-Public Use
  Company Number: GB-JNJFOC-20120206370

PATIENT
  Age: 66 Year
  Sex: Female
  Weight: 58 kg

DRUGS (3)
  1. METHOTREXATE [Concomitant]
     Indication: RHEUMATOID ARTHRITIS
  2. STEROIDS NOS [Concomitant]
     Indication: RHEUMATOID ARTHRITIS
  3. REMICADE [Suspect]
     Indication: RHEUMATOID ARTHRITIS
     Route: 042
     Dates: start: 20100212, end: 20110815

REACTIONS (2)
  - ACUTE MYOCARDIAL INFARCTION [None]
  - BREAST CANCER [None]
